FAERS Safety Report 6755464-5 (Version None)
Quarter: 2010Q2

REPORT INFORMATION
  Report Type: 
  Country: None (occurrence: None)
  Receive Date: 20100604
  Receipt Date: 20100602
  Transmission Date: 20101027
  Serious: Yes (Death)
  Sender: FDA-Public Use
  Company Number: JP-ASTRAZENECA-2010SE25424

PATIENT
  Age: 37 Year
  Sex: Male
  Weight: 105 kg

DRUGS (1)
  1. DIPRIVAN [Suspect]
     Indication: SEDATION
     Route: 042

REACTIONS (1)
  - ACUTE MYOCARDIAL INFARCTION [None]
